FAERS Safety Report 25956352 (Version 1)
Quarter: 2025Q4

REPORT INFORMATION
  Report Type: Spontaneous
  Country: US (occurrence: US)
  Receive Date: 20251024
  Receipt Date: 20251024
  Transmission Date: 20260118
  Serious: Yes (Other)
  Sender: BAYER HEALTHCARE LLC
  Company Number: US-BAYER-2025A139571

PATIENT
  Sex: Male

DRUGS (1)
  1. TINACTIN [Suspect]
     Active Substance: TOLNAFTATE
     Dosage: UNK
     Dates: start: 19920928

REACTIONS (1)
  - Epithelioid mesothelioma [None]

NARRATIVE: CASE EVENT DATE: 20250116
